FAERS Safety Report 4794451-3 (Version None)
Quarter: 2005Q4

REPORT INFORMATION
  Report Type: 
  Country: None (occurrence: None)
  Receive Date: 20051011
  Receipt Date: 20050930
  Transmission Date: 20060501
  Serious: Yes (Hospitalization)
  Sender: FDA-Public Use
  Company Number: US-AMGEN-KDL134037

PATIENT
  Age: 64 Year
  Sex: Male
  Weight: 69.8 kg

DRUGS (1)
  1. PROCRIT [Suspect]
     Indication: DIALYSIS
     Route: 058
     Dates: start: 20030101

REACTIONS (2)
  - PNEUMONIA [None]
  - THERAPEUTIC RESPONSE DECREASED [None]
